FAERS Safety Report 6590706-0 (Version None)
Quarter: 2010Q1

REPORT INFORMATION
  Report Type: 
  Country: None (occurrence: None)
  Receive Date: 20100219
  Receipt Date: 20100215
  Transmission Date: 20100710
  Serious: Yes (Disabling)
  Sender: FDA-Public Use
  Company Number: US-B.I. PHARMACEUTICALS,INC./RIDGEFIELD-2010-BP-01860PF

PATIENT
  Age: 90 Year
  Sex: Male
  Weight: 86.2 kg

DRUGS (13)
  1. SPIRIVA [Suspect]
  2. ZICAM COLD REMEDY RAPIDMELTS WITH VITAMIN C AND ECHINACEA [Suspect]
     Dates: start: 20100105, end: 20100107
  3. ASPIRIN [Concomitant]
  4. MULTI-VITAMIN [Concomitant]
  5. VITAMIN E [Concomitant]
  6. AVALIDE [Concomitant]
  7. PLAVIX [Concomitant]
  8. METOPROLOL TARTRATE [Concomitant]
  9. ISORBIDE [Concomitant]
  10. LIPITOR [Concomitant]
  11. OMEPRAZOLE [Concomitant]
  12. ALLOPURINOL [Concomitant]
  13. IPRATROPIUM [Concomitant]

REACTIONS (1)
  - AGEUSIA [None]
